FAERS Safety Report 11719879 (Version 2)
Quarter: 2015Q4

REPORT INFORMATION
  Report Type: Spontaneous
  Country: US (occurrence: US)
  Receive Date: 20151110
  Receipt Date: 20151207
  Transmission Date: 20160304
  Serious: Yes (Death, Hospitalization)
  Sender: FDA-Public Use
  Company Number: US-ROCHE-1656858

PATIENT
  Age: 75 Year
  Sex: Male
  Weight: 73.55 kg

DRUGS (1)
  1. ESBRIET [Suspect]
     Active Substance: PIRFENIDONE
     Indication: IDIOPATHIC PULMONARY FIBROSIS
     Dosage: 3 CAPSULES
     Route: 048
     Dates: start: 20150929

REACTIONS (2)
  - Lethargy [Unknown]
  - Lung disorder [Fatal]

NARRATIVE: CASE EVENT DATE: 20151021
